FAERS Safety Report 8218929-5 (Version None)
Quarter: 2012Q1

REPORT INFORMATION
  Report Type: 
  Country: None (occurrence: None)
  Receive Date: 20120319
  Receipt Date: 20120312
  Transmission Date: 20120608
  Serious: Yes (Other)
  Sender: FDA-Public Use
  Company Number: US-JNJFOC-20120306637

PATIENT
  Age: 12 Month
  Sex: Female
  Weight: 9.07 kg

DRUGS (1)
  1. DESITIN CREAMY [Suspect]
     Indication: DERMATITIS DIAPER
     Dosage: ^ENOUGH TO COVER AT EACH DIAPER CHANGE^
     Route: 061
     Dates: end: 20120309

REACTIONS (4)
  - APPLICATION SITE VESICLES [None]
  - APPLICATION SITE BLEEDING [None]
  - SKIN DISORDER [None]
  - APPLICATION SITE PRURITUS [None]
